FAERS Safety Report 5222016-8 (Version None)
Quarter: 2007Q1

REPORT INFORMATION
  Report Type: 
  Country: None (occurrence: None)
  Receive Date: 20070126
  Receipt Date: 20070126
  Transmission Date: 20070707
  Serious: Yes (Life-Threatening, Other)
  Sender: FDA-Public Use
  Company Number: None

PATIENT
  Age: 76 Year
  Sex: Male

DRUGS (1)
  1. CLOPIDOGREL [Suspect]
     Indication: CORONARY ARTERIAL STENT INSERTION
     Dosage: 75MG QD PO
     Route: 048
     Dates: start: 20061021, end: 20061025

REACTIONS (3)
  - ANGIOEDEMA [None]
  - DYSPNOEA [None]
  - RASH [None]
